FAERS Safety Report 9981300 (Version 1)
Quarter: 2014Q1

REPORT INFORMATION
  Report Type: Spontaneous
  Country: US (occurrence: None)
  Receive Date: 20140305
  Receipt Date: 20140305
  Transmission Date: 20141002
  Serious: Yes (Hospitalization, Other)
  Sender: FDA-Public Use
  Company Number: ADR-2012-02316

PATIENT
  Age: 18 Year
  Sex: Female

DRUGS (2)
  1. LIORESAL INTRATHECAL (BACLOFEN INJECTION) [Suspect]
     Indication: MUSCLE SPASTICITY
  2. SALINE (PFNS, PBS) [Concomitant]

REACTIONS (10)
  - Withdrawal syndrome [None]
  - Pruritus [None]
  - Muscle spasms [None]
  - Device breakage [None]
  - Device dislocation [None]
  - Device malfunction [None]
  - Medical device complication [None]
  - Drug ineffective [None]
  - Intracranial pressure increased [None]
  - Foreign body [None]
